FAERS Safety Report 6291668-6 (Version None)
Quarter: 2009Q3

REPORT INFORMATION
  Report Type: 
  Country: None (occurrence: None)
  Receive Date: 20090730
  Receipt Date: 20090730
  Transmission Date: 20100115
  Serious: Yes (Life-Threatening, Other)
  Sender: FDA-Public Use
  Company Number: None

PATIENT
  Age: 61 Year
  Sex: Female
  Weight: 61.2356 kg

DRUGS (2)
  1. LILITHOBID 300 MG [Suspect]
     Indication: BIPOLAR DISORDER
     Dosage: 3 DOSES DAILY 300 MG EACH PO
     Route: 048
     Dates: start: 19850101, end: 20090715
  2. ESKOLISH OR GENERIC LI 300 MG [Suspect]
     Dates: start: 19850101, end: 20090715

REACTIONS (9)
  - ARTHRITIS [None]
  - BRONCHITIS [None]
  - FALL [None]
  - FOOD POISONING [None]
  - HEADACHE [None]
  - HYPOTENSION [None]
  - LOSS OF CONSCIOUSNESS [None]
  - RENAL IMPAIRMENT [None]
  - URINARY TRACT INFECTION [None]
